FAERS Safety Report 4844809-9 (Version None)
Quarter: 2005Q4

REPORT INFORMATION
  Report Type: 
  Country: None (occurrence: None)
  Receive Date: 20051205
  Receipt Date: 20051125
  Transmission Date: 20060501
  Serious: Yes (Hospitalization)
  Sender: FDA-Public Use
  Company Number: AU-JNJFOC-20051105571

PATIENT
  Sex: Male
  Weight: 69 kg

DRUGS (10)
  1. DURAGESIC-100 [Suspect]
     Route: 062
  2. DURAGESIC-100 [Suspect]
     Indication: CANCER PAIN
     Route: 062
  3. ORDINE [Suspect]
     Indication: BACK PAIN
     Dosage: 5 TO 10 ML, 4 IN 1 DAY, AS NEEDED (10 MG/ML)
  4. COLOXYL [Concomitant]
     Indication: CONSTIPATION
     Dosage: 2 AT NIGHT
  5. TEGRETOL [Concomitant]
     Indication: EPILEPSY
  6. ZOCOR [Concomitant]
     Indication: HYPERLIPIDAEMIA
     Dosage: AT NIGHT TIME
  7. EFFEXOR [Concomitant]
     Indication: DEPRESSION
  8. PARACETAMOL [Concomitant]
     Indication: BACK PAIN
  9. METOCLOPRAMIDE [Concomitant]
     Indication: NAUSEA
     Dosage: AS NEEDED
  10. SENNA [Concomitant]
     Indication: CONSTIPATION
     Dosage: 2 AT NIGHT

REACTIONS (7)
  - BLADDER CANCER [None]
  - DRUG INTERACTION [None]
  - LOWER RESPIRATORY TRACT INFECTION [None]
  - NAUSEA [None]
  - OVERDOSE [None]
  - THERAPEUTIC RESPONSE DECREASED [None]
  - VOMITING [None]
